FAERS Safety Report 5382596-9 (Version None)
Quarter: 2007Q3

REPORT INFORMATION
  Report Type: 
  Country: None (occurrence: None)
  Receive Date: 20070710
  Receipt Date: 20070629
  Transmission Date: 20080115
  Serious: Yes (Hospitalization)
  Sender: FDA-Public Use
  Company Number: PHHO2007CH09852

PATIENT
  Age: 71 Year
  Sex: Male
  Weight: 110 kg

DRUGS (3)
  1. CALCIUM CHLORIDE [Concomitant]
  2. VITAMIN D [Concomitant]
  3. ZOLEDRONIC ACID [Suspect]
     Indication: METASTASES TO BONE
     Dosage: 4MG EVERY 3 MONTHS
     Route: 042
     Dates: start: 20060808

REACTIONS (3)
  - ARTHROSCOPY [None]
  - KNEE OPERATION [None]
  - OSTEOARTHRITIS [None]
